FAERS Safety Report 9053931 (Version 1)
Quarter: 2013Q1

REPORT INFORMATION
  Report Type: Spontaneous
  Country: US (occurrence: None)
  Receive Date: 20130201
  Receipt Date: 20130201
  Transmission Date: 20140127
  Serious: Yes (Other)
  Sender: FDA-Public Use
  Company Number: None

PATIENT
  Age: 71 Year
  Sex: Female

DRUGS (1)
  1. XELODA 500 MG GENENTECH [Suspect]
     Indication: NEOPLASM MALIGNANT
     Route: 048
     Dates: start: 20130115, end: 20130125

REACTIONS (2)
  - Vomiting [None]
  - Diarrhoea [None]
